FAERS Safety Report 5684204-6 (Version None)
Quarter: 2008Q1

REPORT INFORMATION
  Report Type: 
  Country: None (occurrence: None)
  Receive Date: 20080327
  Receipt Date: 20080327
  Transmission Date: 20080703
  Serious: Yes (Death, Hospitalization)
  Sender: FDA-Public Use
  Company Number: None

PATIENT
  Age: 43 Year
  Sex: Female
  Weight: 58 kg

DRUGS (23)
  1. DEPOCYT [Suspect]
     Indication: METASTASES TO MENINGES
     Dosage: 50MG ONCE IT
     Route: 037
     Dates: start: 20080314, end: 20080314
  2. DEXAMETHASONE TAB [Concomitant]
  3. LORAZEPAM [Concomitant]
  4. ONDANSETRON [Concomitant]
  5. DILANTIN [Concomitant]
  6. PREVACID [Concomitant]
  7. DECADRON [Concomitant]
  8. B6 [Concomitant]
  9. M.V.I. [Concomitant]
  10. SENNA/DULCOLAX [Concomitant]
  11. IRON SUPPLEMENTS [Concomitant]
  12. TYLENOL (CAPLET) [Concomitant]
  13. AROMASIN [Concomitant]
  14. ZOMETA [Concomitant]
  15. LEUCOVORIN CALCIUM [Concomitant]
  16. METHOTREXATE [Concomitant]
  17. CALCIUM AND VITAMIN D SUPPLEMENTS [Concomitant]
  18. TUMERIC [Concomitant]
  19. DIETARY SUPPLEMENT [Concomitant]
  20. ZOFRAN [Concomitant]
  21. IBUPROFEN [Concomitant]
  22. ZOLADEX [Concomitant]
  23. HERCEPTIN [Concomitant]

REACTIONS (12)
  - APNOEIC ATTACK [None]
  - BACK PAIN [None]
  - CONFUSIONAL STATE [None]
  - CONVULSION [None]
  - ELECTROENCEPHALOGRAM ABNORMAL [None]
  - HEADACHE [None]
  - INTRACRANIAL PRESSURE INCREASED [None]
  - NAUSEA [None]
  - NERVOUS SYSTEM DISORDER [None]
  - PAIN IN EXTREMITY [None]
  - UNRESPONSIVE TO STIMULI [None]
  - VOMITING [None]
